FAERS Safety Report 9650661 (Version 1)
Quarter: 2013Q4

REPORT INFORMATION
  Report Type: Spontaneous
  Country: US (occurrence: US)
  Receive Date: 20131029
  Receipt Date: 20131029
  Transmission Date: 20140711
  Serious: No
  Sender: FDA-Public Use
  Company Number: US-009507513-1310USA009814

PATIENT
  Age: 23 Year
  Sex: Female
  Weight: 58.5 kg

DRUGS (1)
  1. IMPLANON [Suspect]
     Indication: CONTRACEPTION
     Dosage: 1 ROD UP TO 3 YRS
     Route: 059
     Dates: start: 20130601

REACTIONS (4)
  - Menstruation delayed [Unknown]
  - Menorrhagia [Not Recovered/Not Resolved]
  - Polymenorrhagia [Not Recovered/Not Resolved]
  - Inappropriate schedule of drug administration [Unknown]
